FAERS Safety Report 18908992 (Version 1)
Quarter: 2021Q1

REPORT INFORMATION
  Report Type: Spontaneous
  Country: US (occurrence: US)
  Receive Date: 20210217
  Receipt Date: 20210217
  Transmission Date: 20210420
  Serious: Yes (Other)
  Sender: FDA-Public Use
  Company Number: None

PATIENT
  Age: 26 Year
  Sex: Male
  Weight: 78.75 kg

DRUGS (1)
  1. ASENAPINE. [Suspect]
     Active Substance: ASENAPINE
     Indication: BIPOLAR DISORDER
     Route: 060
     Dates: start: 20210111, end: 20210217

REACTIONS (4)
  - Agitation [None]
  - Hypomania [None]
  - Product solubility abnormal [None]
  - Product substitution issue [None]

NARRATIVE: CASE EVENT DATE: 20210201
